APPROVED DRUG PRODUCT: BUTALBITAL, ACETAMINOPHEN, CAFFEINE AND CODEINE PHOSPHATE
Active Ingredient: ACETAMINOPHEN; BUTALBITAL; CAFFEINE; CODEINE PHOSPHATE
Strength: 325MG;50MG;40MG;30MG
Dosage Form/Route: CAPSULE;ORAL
Application: A076528 | Product #001
Applicant: ABLE LABORATORIES INC
Approved: Aug 21, 2003 | RLD: No | RS: No | Type: DISCN